FAERS Safety Report 9779829 (Version 1)
Quarter: 2013Q4

REPORT INFORMATION
  Report Type: Report from Study
  Country: RU (occurrence: RU)
  Receive Date: 20131223
  Receipt Date: 20131223
  Transmission Date: 20140711
  Serious: Yes (Life-Threatening, Hospitalization)
  Sender: FDA-Public Use
  Company Number: RU-GLAXOSMITHKLINE-B0955061A

PATIENT
  Age: 51 Year
  Sex: Male
  Weight: 117 kg

DRUGS (6)
  1. OMACOR [Suspect]
     Indication: MYOCARDIAL INFARCTION
     Dosage: 1000MG PER DAY
     Route: 048
     Dates: start: 20130307
  2. ASPIRIN [Concomitant]
     Dosage: 100MG PER DAY
     Route: 048
     Dates: start: 20090227
  3. CLOPIDOGREL [Concomitant]
     Dosage: 75MG PER DAY
     Route: 048
     Dates: start: 20130218
  4. BISOPROLOL [Concomitant]
     Dosage: 5MG PER DAY
     Route: 048
     Dates: start: 20130218
  5. PERINDOPRIL [Concomitant]
     Dosage: 5MG PER DAY
     Dates: start: 20060410
  6. ATORVASTATIN CALCIUM [Concomitant]
     Dosage: 20MG PER DAY
     Route: 048
     Dates: start: 20130218

REACTIONS (3)
  - Cholecystitis [Recovered/Resolved]
  - Abdominal abscess [Recovered/Resolved]
  - Pain [Recovered/Resolved]
